FAERS Safety Report 9097082 (Version 4)
Quarter: 2013Q1

REPORT INFORMATION
  Report Type: Spontaneous
  Country: IT (occurrence: None)
  Receive Date: 20130123
  Receipt Date: 20130215
  Transmission Date: 20140127
  Serious: Yes (Hospitalization)
  Sender: FDA-Public Use
  Company Number: AUR-APL-2013-00736

PATIENT
  Age: 73 Year
  Sex: Male

DRUGS (14)
  1. METFORMIN (METFORMIN) [Suspect]
     Indication: DIABETES MELLITUS
     Route: 048
     Dates: start: 20121226, end: 20121229
  2. LEVOFLOXACIN (LEVOFLOXACIN) [Suspect]
     Indication: PNEUMONIA
     Route: 048
     Dates: start: 20121226, end: 20130104
  3. CARVEDILOL (CARVEDILOL) [Suspect]
     Indication: CARDIOMEGALY
     Route: 048
     Dates: start: 20121226, end: 20130108
  4. TRIATEC (RAMIPRIL) [Suspect]
     Indication: GASTROOESOPHAGEAL REFLUX DISEASE
     Route: 048
     Dates: start: 20121226, end: 20130108
  5. TRIATEC (RAMIPRIL) [Suspect]
     Indication: HYPERTENSION
     Route: 048
     Dates: start: 20121226, end: 20130108
  6. TRIATEC (RAMIPRIL) [Suspect]
     Indication: ESSENTIAL HYPERTENSION
  7. LASIX (FUROSEMIDE) [Suspect]
     Indication: POLYURIA
     Route: 048
     Dates: start: 20121226, end: 20130108
  8. NITRO-DUR [Suspect]
     Indication: ANGINA UNSTABLE
     Route: 062
     Dates: start: 20121226, end: 20130108
  9. CARDIOASPIRIN (ACETYLSALICYLIC ACID) [Suspect]
     Indication: ANTICOAGULANT THERAPY
     Route: 048
     Dates: start: 20121226, end: 20121229
  10. BRONCOVALEAS [Suspect]
     Indication: PNEUMONIA
     Route: 045
     Dates: start: 20130101, end: 20130107
  11. CLENIL [Suspect]
     Indication: PNEUMONIA
     Route: 045
     Dates: start: 20121226, end: 20130101
  12. LANSOPRAZOLE (LANSOPRAZOLE) [Concomitant]
  13. CLEXANE (ENOXAPARIN SODIUM) [Concomitant]
  14. IDROPLURIVIT (IDROPLURIVIT) [Concomitant]

REACTIONS (1)
  - Tendonitis [None]
